FAERS Safety Report 25849975 (Version 2)
Quarter: 2025Q4

REPORT INFORMATION
  Report Type: Spontaneous
  Country: US (occurrence: US)
  Receive Date: 20250926
  Receipt Date: 20251024
  Transmission Date: 20260117
  Serious: Yes (Other)
  Sender: SPECGX
  Company Number: US-SPECGX-T202501481

PATIENT
  Sex: Female

DRUGS (3)
  1. OXYCODONE [Suspect]
     Active Substance: OXYCODONE
     Indication: Product used for unknown indication
     Dosage: UNK
     Route: 064
  2. PERCOCET [Suspect]
     Active Substance: ACETAMINOPHEN\OXYCODONE HYDROCHLORIDE
     Indication: Product used for unknown indication
     Dosage: UNK
     Route: 064
  3. OXYCONTIN [Suspect]
     Active Substance: OXYCODONE HYDROCHLORIDE
     Indication: Product used for unknown indication
     Dosage: UNK
     Route: 064

REACTIONS (15)
  - Autism spectrum disorder [Unknown]
  - Premature baby [Unknown]
  - Von Willebrand^s disease [Unknown]
  - Bipolar disorder [Unknown]
  - Transfusion [Unknown]
  - Detoxification [Unknown]
  - Amnesia [Unknown]
  - Emotional distress [Unknown]
  - Small for dates baby [Unknown]
  - Depression [Unknown]
  - Dyspepsia [Unknown]
  - Gastrointestinal disorder [Unknown]
  - Personality disorder [Unknown]
  - Sleep disorder [Unknown]
  - Foetal exposure during pregnancy [Unknown]
